FAERS Safety Report 11814927 (Version 1)
Quarter: 2015Q4

REPORT INFORMATION
  Report Type: Spontaneous
  Country: US (occurrence: US)
  Receive Date: 20151209
  Receipt Date: 20151209
  Transmission Date: 20160305
  Serious: No
  Sender: FDA-Public Use
  Company Number: US-SA-2015SA142200

PATIENT
  Age: 48 Year
  Sex: Male

DRUGS (4)
  1. SOLOSTAR [Concomitant]
     Active Substance: DEVICE
     Dates: start: 201508
  2. PREDNISONE. [Suspect]
     Active Substance: PREDNISONE
     Indication: BRONCHITIS
     Route: 065
  3. TOUJEO [Suspect]
     Active Substance: INSULIN GLARGINE
     Dosage: DOSE:16 UNIT(S)
     Route: 065
     Dates: start: 201508
  4. TOUJEO [Suspect]
     Active Substance: INSULIN GLARGINE
     Dosage: DOSE:22 UNIT(S)
     Route: 065
     Dates: start: 201509

REACTIONS (2)
  - Bronchitis [Unknown]
  - Blood glucose increased [Not Recovered/Not Resolved]

NARRATIVE: CASE EVENT DATE: 201509
